FAERS Safety Report 10058514 (Version 1)
Quarter: 2014Q2

REPORT INFORMATION
  Report Type: Spontaneous
  Country: US (occurrence: US)
  Receive Date: 20140404
  Receipt Date: 20140404
  Transmission Date: 20141212
  Serious: Yes (Hospitalization, Other)
  Sender: FDA-Public Use
  Company Number: US-BAYER-2014-049149

PATIENT
  Age: 21 Year
  Sex: Female
  Weight: 64.85 kg

DRUGS (14)
  1. YAZ [Suspect]
  2. YASMIN [Suspect]
  3. NITROFURANTOIN [Concomitant]
     Dosage: 100 MG, BID 1 EVERY DAY
     Route: 048
  4. SULFAMETHOXAZOLE [Concomitant]
     Dosage: 1 TABLET TWICE DAILY
  5. TRIMETHOPRIM [Concomitant]
     Dosage: 1 TABLET TWICE DAILY
     Route: 048
  6. FLUCONAZOLE [Concomitant]
     Dosage: 100 MG, QD
     Route: 048
  7. OXYCODONE/APAP [Concomitant]
     Dosage: 1 EVERY 6 HOURS AS NEEDED
     Route: 048
  8. CEPHALEXIN [Concomitant]
     Dosage: 500 MG, QD
     Route: 048
  9. VICODIN [Concomitant]
     Dosage: PRN
  10. VICODIN ES [Concomitant]
  11. PERCOCET [Concomitant]
     Dosage: PRN
  12. MACROBID [Concomitant]
     Dosage: PO QD
  13. IBUPROFEN [Concomitant]
  14. IRON [Concomitant]

REACTIONS (2)
  - Pulmonary embolism [None]
  - Deep vein thrombosis [None]
